FAERS Safety Report 23817865 (Version 3)
Quarter: 2024Q3

REPORT INFORMATION
  Report Type: Spontaneous
  Country: CO (occurrence: CO)
  Receive Date: 20240506
  Receipt Date: 20240705
  Transmission Date: 20241017
  Serious: Yes (Other)
  Sender: SANDOZ
  Company Number: CO-002147023-NVSC2022CO028780

PATIENT
  Sex: Female
  Weight: 78 kg

DRUGS (5)
  1. MONTELUKAST [Suspect]
     Active Substance: MONTELUKAST SODIUM
     Dosage: UNK
     Route: 065
  2. MONTELUKAST [Suspect]
     Active Substance: MONTELUKAST SODIUM
     Indication: Asthma
     Dosage: UNK, PRN (WHEN NEEDED) (STARTED 4 YEARS AGO)
     Route: 048
  3. XOLAIR [Suspect]
     Active Substance: OMALIZUMAB
     Dosage: 150 MG, QMO
     Route: 058
  4. XOLAIR [Suspect]
     Active Substance: OMALIZUMAB
     Dosage: 300 MG, QMO
     Route: 058
     Dates: start: 20190318
  5. XOLAIR [Suspect]
     Active Substance: OMALIZUMAB
     Indication: Asthma
     Dosage: 300 MG, QMO (STARTED 4 YEARS AGO)
     Route: 058

REACTIONS (11)
  - Asthmatic crisis [Unknown]
  - Rhinitis [Unknown]
  - Pyrexia [Unknown]
  - Productive cough [Unknown]
  - Back pain [Recovered/Resolved]
  - General physical health deterioration [Unknown]
  - Influenza [Unknown]
  - Nasal congestion [Unknown]
  - Rhinalgia [Unknown]
  - Sneezing [Unknown]
  - Malaise [Unknown]
